FAERS Safety Report 11769809 (Version 3)
Quarter: 2016Q3

REPORT INFORMATION
  Report Type: Spontaneous
  Country: US (occurrence: US)
  Receive Date: 20151123
  Receipt Date: 20160724
  Transmission Date: 20161109
  Serious: Yes (Hospitalization, Other)
  Sender: FDA-Public Use
  Company Number: US-ELI_LILLY_AND_COMPANY-US201511004233

PATIENT
  Age: 66 Year
  Sex: Female
  Weight: 52.16 kg

DRUGS (6)
  1. HUMALOG [Suspect]
     Active Substance: INSULIN LISPRO
     Indication: DIABETES MELLITUS
     Dosage: UNK, PRN
     Route: 065
  2. NITROSTAT [Concomitant]
     Active Substance: NITROGLYCERIN
  3. PREDNISONE. [Suspect]
     Active Substance: PREDNISONE
     Indication: PRODUCT USED FOR UNKNOWN INDICATION
     Dosage: UNK, UNKNOWN
     Route: 065
  4. HUMALOG [Suspect]
     Active Substance: INSULIN LISPRO
     Indication: PRODUCT USED FOR UNKNOWN INDICATION
     Dosage: UNK UNK, UNKNOWN
     Route: 065
     Dates: start: 1970, end: 20160414
  5. LANTUS [Concomitant]
     Active Substance: INSULIN GLARGINE
     Indication: DIABETES MELLITUS
     Route: 065
  6. HUMALOG [Suspect]
     Active Substance: INSULIN LISPRO
     Indication: DIABETES MELLITUS
     Dosage: UNK, TID
     Route: 065

REACTIONS (11)
  - Joint swelling [Not Recovered/Not Resolved]
  - Arterial occlusive disease [Unknown]
  - Coeliac disease [Unknown]
  - Myocardial infarction [Unknown]
  - Infection [Unknown]
  - Blood glucose decreased [Unknown]
  - Eye disorder [Unknown]
  - Gluten sensitivity [Unknown]
  - Breast pain [Not Recovered/Not Resolved]
  - Decreased activity [Unknown]
  - Breast swelling [Not Recovered/Not Resolved]

NARRATIVE: CASE EVENT DATE: 20150827
